FAERS Safety Report 18779805 (Version 1)
Quarter: 2021Q1

REPORT INFORMATION
  Report Type: Spontaneous
  Country: US (occurrence: US)
  Receive Date: 20210125
  Receipt Date: 20210125
  Transmission Date: 20210419
  Serious: Yes (Life-Threatening, Hospitalization, Congenital Anomaly, Other)
  Sender: FDA-Public Use
  Company Number: US-EPICPHARMA-US-2021EPCLIT00031

PATIENT
  Sex: Female

DRUGS (5)
  1. CITALOPRAM [Suspect]
     Active Substance: CITALOPRAM HYDROBROMIDE
     Indication: FOETAL EXPOSURE DURING PREGNANCY
     Route: 064
  2. PARACETAMOL [Suspect]
     Active Substance: ACETAMINOPHEN
     Indication: FOETAL EXPOSURE DURING PREGNANCY
     Route: 064
  3. ACETYLSALICYLIC ACID [Suspect]
     Active Substance: ASPIRIN
     Indication: FOETAL EXPOSURE DURING PREGNANCY
     Route: 064
  4. MILRINONE [Interacting]
     Active Substance: MILRINONE
     Indication: HYPOXIA
     Dosage: 0.33 MCGKGMIN
     Route: 042
  5. IBUPROFEN. [Suspect]
     Active Substance: IBUPROFEN
     Indication: FOETAL EXPOSURE DURING PREGNANCY
     Route: 064

REACTIONS (17)
  - Foetal growth restriction [Recovered/Resolved]
  - Umbilical artery vascular resistance increased [Recovered/Resolved]
  - Cardiomegaly [Recovered/Resolved]
  - Neonatal sinus tachycardia [Recovered/Resolved]
  - Cardiac hypertrophy [Recovered/Resolved]
  - Foetal heart rate disorder [Recovering/Resolving]
  - Ductus arteriosus premature closure [Recovered/Resolved]
  - Ventricular septal defect [Recovered/Resolved]
  - Neonatal respiratory failure [Recovered/Resolved]
  - Systolic dysfunction [Recovered/Resolved]
  - Premature baby [Unknown]
  - Neonatal hypoxia [Recovered/Resolved]
  - Diastolic dysfunction [Recovered/Resolved]
  - Pulmonary hypertension [Recovered/Resolved]
  - Atrial septal defect [Recovered/Resolved]
  - Tricuspid valve incompetence [Recovered/Resolved]
  - Foetal placental thrombosis [Recovered/Resolved]
